FAERS Safety Report 20854068 (Version 2)
Quarter: 2022Q2

REPORT INFORMATION
  Report Type: Report from Study
  Country: DE (occurrence: DE)
  Receive Date: 20220520
  Receipt Date: 20220525
  Transmission Date: 20220721
  Serious: Yes (Hospitalization)
  Sender: FDA-Public Use
  Company Number: DE-BAXTER-2022BAX009479

PATIENT
  Sex: Male
  Weight: 73 kg

DRUGS (14)
  1. PIOGLITAZONE [Suspect]
     Active Substance: PIOGLITAZONE
     Indication: Metastatic malignant melanoma
     Dosage: 45 MILLIGRAM, PRN (45 DOSAGE FROM, PRN)
     Route: 048
     Dates: start: 20140909, end: 20150821
  2. TROFOSFAMIDE [Suspect]
     Active Substance: TROFOSFAMIDE
     Indication: Metastatic malignant melanoma
     Dosage: 150 DOSAGE FORM, PRN (150 MILLIGRAM,PRN)
     Route: 048
     Dates: start: 20140909, end: 20150821
  3. TROFOSFAMIDE [Suspect]
     Active Substance: TROFOSFAMIDE
     Dosage: 100 MILLIGRAM, PRN (100 DOSAGE FORM, PRN)
     Route: 048
     Dates: start: 20150821
  4. TROFOSFAMIDE [Suspect]
     Active Substance: TROFOSFAMIDE
     Indication: Metastatic malignant melanoma
     Dosage: 150 MILLIGRAM
     Route: 048
     Dates: start: 20140909, end: 20150821
  5. TEMSIROLIMUS [Suspect]
     Active Substance: TEMSIROLIMUS
     Indication: Metastatic malignant melanoma
     Dosage: 15 MILLIGRAM
     Route: 042
     Dates: start: 20140909, end: 20150714
  6. TEMSIROLIMUS [Suspect]
     Active Substance: TEMSIROLIMUS
     Dosage: 15 DOSAGE FORM, PRN (15 MILLIGRAM,PRN)
     Route: 042
     Dates: start: 20140909, end: 20150714
  7. DACARBAZINE [Suspect]
     Active Substance: DACARBAZINE
     Indication: Metastatic malignant melanoma
     Dosage: UNK
     Route: 042
  8. DACARBAZINE [Suspect]
     Active Substance: DACARBAZINE
     Dosage: UNK, PRN
     Route: 042
  9. ETORICOXIB [Suspect]
     Active Substance: ETORICOXIB
     Indication: Metastatic malignant melanoma
     Dosage: 30 MILLIGRAM, PRN (30 DOSAGE FORM, PRN)
     Route: 048
     Dates: start: 20140909, end: 20150821
  10. TORSEMIDE [Concomitant]
     Active Substance: TORSEMIDE
     Indication: Oedema
     Dosage: 5 DOSAGE FORM, QD (5 MG, FREQUENCY 1-0-0)
     Route: 048
  11. METAMIZOL [Concomitant]
     Active Substance: METAMIZOLE SODIUM
     Indication: Pain
     Dosage: 1500 DOSAGE FORM, QD (500 MG, FREQUENCY 1-1-1)
     Route: 048
  12. HYDROCHLOROTHIAZIDE [Concomitant]
     Active Substance: HYDROCHLOROTHIAZIDE
     Indication: Hypertension
     Dosage: 25 DOSAGE FORM, QD (25 MG, FREQUENCY 1-0-0)
     Route: 048
  13. PANTOZOL [Concomitant]
     Active Substance: PANTOPRAZOLE SODIUM
     Indication: Prophylaxis
     Dosage: 40 DOSAGE FORM, QD (40 MG, FREQUENCY 1-0-0)
     Route: 048
     Dates: start: 20140909
  14. SPIRONOLACTONE [Concomitant]
     Active Substance: SPIRONOLACTONE
     Indication: Oedema
     Dosage: 25 DOSAGE FORM, QD (25 MG, FREQUENCY 0-1-0)
     Route: 048
     Dates: start: 20140909

REACTIONS (1)
  - Inguinal hernia [Recovered/Resolved]

NARRATIVE: CASE EVENT DATE: 20150821
